FAERS Safety Report 7005945-4 (Version None)
Quarter: 2010Q3

REPORT INFORMATION
  Report Type: 
  Country: None (occurrence: None)
  Receive Date: 20100917
  Receipt Date: 20100902
  Transmission Date: 20110219
  Serious: Yes (Other)
  Sender: FDA-Public Use
  Company Number: DSA_43856_2010

PATIENT
  Age: 41 Year
  Sex: Female

DRUGS (5)
  1. ENALAPRIL MALEATE [Suspect]
     Indication: ESSENTIAL HYPERTENSION
     Dosage: (10 MG QD ORAL), (20 MG QD ORAL)
     Route: 048
     Dates: start: 20091109, end: 20100201
  2. ENALAPRIL MALEATE [Suspect]
     Indication: ESSENTIAL HYPERTENSION
     Dosage: (10 MG QD ORAL), (20 MG QD ORAL)
     Route: 048
     Dates: start: 20100202, end: 20100320
  3. SIMVASTATIN [Concomitant]
  4. WARAN [Concomitant]
  5. LEVOTHYROXINE SODIUM [Concomitant]

REACTIONS (8)
  - BLOOD PRESSURE INCREASED [None]
  - COUGH [None]
  - EYE PAIN [None]
  - FEELING HOT [None]
  - OEDEMA PERIPHERAL [None]
  - RASH [None]
  - VISION BLURRED [None]
  - VISUAL ACUITY REDUCED [None]
